FAERS Safety Report 11949405 (Version 2)
Quarter: 2016Q1

REPORT INFORMATION
  Report Type: Spontaneous
  Country: AU (occurrence: AU)
  Receive Date: 20160125
  Receipt Date: 20160201
  Transmission Date: 20160526
  Serious: Yes (Hospitalization)
  Sender: FDA-Public Use
  Company Number: AU-GLAXOSMITHKLINE-AU2016GSK009667

PATIENT
  Sex: Male

DRUGS (1)
  1. IMIGRAN MKII [Suspect]
     Active Substance: SUMATRIPTAN SUCCINATE
     Indication: CLUSTER HEADACHE
     Dosage: 0.5 ML, SINGLE
     Route: 042

REACTIONS (2)
  - Drug dose omission [Unknown]
  - Device failure [Unknown]
